FAERS Safety Report 9973026 (Version 1)
Quarter: 2014Q1

REPORT INFORMATION
  Report Type: Spontaneous
  Country: US (occurrence: US)
  Receive Date: 20140306
  Receipt Date: 20140306
  Transmission Date: 20141002
  Serious: No
  Sender: FDA-Public Use
  Company Number: US-TEVA-466456USA

PATIENT
  Sex: 0

DRUGS (1)
  1. PROAIR HFA [Suspect]

REACTIONS (3)
  - Eye discharge [Unknown]
  - Lung disorder [Unknown]
  - Rhinorrhoea [Unknown]
